FAERS Safety Report 14773062 (Version 1)
Quarter: 2018Q2

REPORT INFORMATION
  Report Type: Spontaneous
  Country: US (occurrence: US)
  Receive Date: 20180411
  Receipt Date: 20180411
  Transmission Date: 20180711
  Serious: Yes (Hospitalization)
  Sender: FDA-Public Use
  Company Number: None

PATIENT
  Age: 78 Year
  Sex: Male
  Weight: 66.3 kg

DRUGS (3)
  1. DEXAMETHASONE. [Suspect]
     Active Substance: DEXAMETHASONE
     Dates: end: 20180402
  2. LENALIDOMIDE (CC-5013) [Suspect]
     Active Substance: LENALIDOMIDE
     Dates: end: 20180404
  3. VELCADE [Suspect]
     Active Substance: BORTEZOMIB
     Dates: end: 20180401

REACTIONS (4)
  - Back pain [None]
  - Flank pain [None]
  - Rib fracture [None]
  - Vomiting [None]

NARRATIVE: CASE EVENT DATE: 20180405
